FAERS Safety Report 16413800 (Version 1)
Quarter: 2019Q2

REPORT INFORMATION
  Report Type: Report from Study
  Country: US (occurrence: US)
  Receive Date: 20190611
  Receipt Date: 20190611
  Transmission Date: 20190711
  Serious: Yes (Hospitalization, Other)
  Sender: FDA-Public Use
  Company Number: US-SA-2019SA156492

PATIENT
  Age: 70 Year
  Sex: Female

DRUGS (1)
  1. ENOXAPARIN SODIUM. [Suspect]
     Active Substance: ENOXAPARIN SODIUM
     Indication: PULMONARY EMBOLISM
     Dosage: 100 MG, QD
     Route: 058

REACTIONS (4)
  - Cardiac arrest [Unknown]
  - Hypokalaemia [Unknown]
  - Nausea [Unknown]
  - Rotavirus infection [Unknown]

NARRATIVE: CASE EVENT DATE: 20190124
